FAERS Safety Report 15308577 (Version 1)
Quarter: 2018Q3

REPORT INFORMATION
  Report Type: Report from Study
  Country: US (occurrence: US)
  Receive Date: 20180822
  Receipt Date: 20180822
  Transmission Date: 20181010
  Serious: No
  Sender: FDA-Public Use
  Company Number: PHEH2018US034008

PATIENT
  Age: 62 Year

DRUGS (1)
  1. ILARIS [Suspect]
     Active Substance: CANAKINUMAB
     Indication: PYREXIA
     Dosage: 150 MG, Q8 WEEKS
     Route: 058

REACTIONS (3)
  - Hypoaesthesia [Unknown]
  - Burning sensation [Unknown]
  - Insomnia [Unknown]

NARRATIVE: CASE EVENT DATE: 20180809
